FAERS Safety Report 25331016 (Version 1)
Quarter: 2025Q2

REPORT INFORMATION
  Report Type: Spontaneous
  Country: US (occurrence: None)
  Receive Date: 20250516
  Receipt Date: 20250516
  Transmission Date: 20250717
  Serious: No
  Sender: FDA-CTU
  Company Number: None

PATIENT
  Age: 65 Year
  Sex: Female

DRUGS (1)
  1. SUFLAVE [Suspect]
     Active Substance: MAGNESIUM SULFATE ANHYDROUS\POLYETHYLENE GLYCOL 3350\POTASSIUM CHLORIDE\SODIUM CHLORIDE\SODIUM SULFA
     Indication: Bowel preparation
     Dosage: 1 RECONSTITUTED DOSE DAILY ORAL
     Route: 048
     Dates: start: 20250514, end: 20250515

REACTIONS (19)
  - Pruritus [None]
  - Pruritus [None]
  - Pruritus [None]
  - Abdominal pain upper [None]
  - Abdominal distension [None]
  - Headache [None]
  - Flushing [None]
  - Lethargy [None]
  - Fatigue [None]
  - Depressed mood [None]
  - Feeling of despair [None]
  - Thirst [None]
  - Anxiety [None]
  - Fear [None]
  - Pain [None]
  - Nausea [None]
  - Vomiting [None]
  - Depression [None]
  - Abdominal discomfort [None]

NARRATIVE: CASE EVENT DATE: 20250514
